FAERS Safety Report 5232760-4 (Version None)
Quarter: 2007Q1

REPORT INFORMATION
  Report Type: 
  Country: None (occurrence: None)
  Receive Date: 20070206
  Receipt Date: 20070206
  Transmission Date: 20070707
  Serious: No
  Sender: FDA-Public Use
  Company Number: None

PATIENT
  Age: 72 Year
  Sex: Male
  Weight: 108.8633 kg

DRUGS (3)
  1. CHANTIX [Suspect]
     Indication: SMOKING CESSATION THERAPY
     Dosage: 0.5MG   BID X3 DAYS INITIA    PO;  1 MG  BID MAINT  PO
     Route: 048
     Dates: start: 20070101, end: 20070104
  2. CHANTIX [Suspect]
     Indication: SMOKING CESSATION THERAPY
     Dosage: 0.5MG   BID X3 DAYS INITIA    PO;  1 MG  BID MAINT  PO
     Route: 048
     Dates: start: 20070105, end: 20070117
  3. CHANTIX [Suspect]

REACTIONS (6)
  - DYSPNOEA [None]
  - FEELING ABNORMAL [None]
  - HEADACHE [None]
  - SOMNOLENCE [None]
  - VISUAL DISTURBANCE [None]
  - VISUAL FIELD DEFECT [None]
